FAERS Safety Report 26062274 (Version 1)
Quarter: 2025Q4

REPORT INFORMATION
  Report Type: Spontaneous
  Country: US (occurrence: US)
  Receive Date: 20251119
  Receipt Date: 20251119
  Transmission Date: 20260117
  Serious: Yes (Other)
  Sender: RIGEL PHARMACEUTICALS
  Company Number: US-RIGEL Pharmaceuticals, INC-20251100068

PATIENT
  Age: 51 Year
  Sex: Female

DRUGS (2)
  1. PRALSETINIB [Suspect]
     Active Substance: PRALSETINIB
     Indication: Medullary thyroid cancer
     Dosage: UNK
  2. PRALSETINIB [Suspect]
     Active Substance: PRALSETINIB
     Indication: Acute myeloid leukaemia

REACTIONS (1)
  - Thrombocytopenia [Unknown]
